FAERS Safety Report 6146064-9 (Version None)
Quarter: 2009Q2

REPORT INFORMATION
  Report Type: 
  Country: None (occurrence: None)
  Receive Date: 20090403
  Receipt Date: 20090318
  Transmission Date: 20091009
  Serious: Yes (Other)
  Sender: FDA-Public Use
  Company Number: 8044266

PATIENT

DRUGS (2)
  1. METHYLPHENIDATE HCL [Suspect]
     Indication: APATHY
     Dosage: 5 MG 2/D PO
     Route: 048
  2. METHYLPHENIDATE HCL [Suspect]
     Indication: APATHY
     Dosage: 10 MG 2/D PO
     Route: 048

REACTIONS (5)
  - AGGRESSION [None]
  - AGITATION [None]
  - ANGER [None]
  - DELUSION [None]
  - FLUSHING [None]
